FAERS Safety Report 6085945-1 (Version None)
Quarter: 2009Q1

REPORT INFORMATION
  Report Type: 
  Country: None (occurrence: None)
  Receive Date: 20090220
  Receipt Date: 20090213
  Transmission Date: 20090719
  Serious: Yes (Other)
  Sender: FDA-Public Use
  Company Number: US-ELI_LILLY_AND_COMPANY-US200902003573

PATIENT
  Sex: Female

DRUGS (4)
  1. HUMALOG [Suspect]
  2. HUMAN INSULIN (RDNA ORIGIN) [Suspect]
     Dosage: UNK, UNK
     Dates: start: 20070101, end: 20070101
  3. LANTUS [Concomitant]
     Indication: TYPE 2 DIABETES MELLITUS
  4. LEVEMIR [Concomitant]
     Indication: TYPE 2 DIABETES MELLITUS

REACTIONS (10)
  - ARTHRITIS [None]
  - EYE DISORDER [None]
  - EYE HAEMORRHAGE [None]
  - EYE INFLAMMATION [None]
  - INJECTION SITE HAEMORRHAGE [None]
  - INJECTION SITE IRRITATION [None]
  - INJECTION SITE PAIN [None]
  - MACULAR DEGENERATION [None]
  - OSTEOARTHRITIS [None]
  - SPONDYLITIS [None]
